FAERS Safety Report 5898539-5 (Version None)
Quarter: 2008Q3

REPORT INFORMATION
  Report Type: 
  Country: None (occurrence: None)
  Receive Date: 20080925
  Receipt Date: 20080109
  Transmission Date: 20090109
  Serious: No
  Sender: FDA-Public Use
  Company Number: A0702187A

PATIENT
  Age: 58 Year
  Sex: Male

DRUGS (4)
  1. WELLBUTRIN XL [Suspect]
     Indication: DEPRESSION
     Dosage: 450MG PER DAY
     Route: 048
     Dates: start: 19970101
  2. WELLBUTRIN [Suspect]
     Indication: DEPRESSION
     Route: 048
  3. WELLBUTRIN SR [Suspect]
     Indication: DEPRESSION
     Route: 048
  4. PROVIGIL [Concomitant]

REACTIONS (3)
  - DISTURBANCE IN ATTENTION [None]
  - HYPERTENSION [None]
  - TREMOR [None]
